FAERS Safety Report 25890479 (Version 1)
Quarter: 2025Q4

REPORT INFORMATION
  Report Type: Spontaneous
  Country: EU (occurrence: EU)
  Receive Date: 20251007
  Receipt Date: 20251007
  Transmission Date: 20260118
  Serious: Yes (Other)
  Sender: PFIZER
  Company Number: None

PATIENT
  Age: 79 Year
  Sex: Female
  Weight: 86 kg

DRUGS (3)
  1. TRASTUZUMAB [Suspect]
     Active Substance: TRASTUZUMAB
     Dosage: 688 MG, 1X/DAY
     Route: 042
     Dates: start: 20250924, end: 20250924
  2. TRASTUZUMAB [Suspect]
     Active Substance: TRASTUZUMAB
     Dosage: 688 MG, 1X/DAY
     Route: 042
     Dates: start: 20250924, end: 20250924
  3. PACLITAXEL [Suspect]
     Active Substance: PACLITAXEL
     Dosage: 122.08 MG, 1X/DAY
     Route: 042
     Dates: start: 20250924, end: 20250924

REACTIONS (6)
  - Hypertension [Recovered/Resolved]
  - Hyperhidrosis [Recovered/Resolved]
  - Nausea [Recovered/Resolved]
  - Vomiting [Recovered/Resolved]
  - Flushing [Recovered/Resolved]
  - Oxygen saturation decreased [Recovered/Resolved]

NARRATIVE: CASE EVENT DATE: 20250924
